FAERS Safety Report 7399663-0 (Version None)
Quarter: 2011Q2

REPORT INFORMATION
  Report Type: 
  Country: None (occurrence: None)
  Receive Date: 20110407
  Receipt Date: 20100318
  Transmission Date: 20111010
  Serious: No
  Sender: FDA-Public Use
  Company Number: US-KINGPHARMUSA00001-K201000339

PATIENT
  Age: 17 Year
  Sex: Male
  Weight: 68.39 kg

DRUGS (2)
  1. SKELAXIN [Suspect]
     Indication: HEADACHE
     Dosage: 800 MG, Q6H
     Route: 048
     Dates: start: 20100309, end: 20100314
  2. TETRACYCLINE [Concomitant]
     Indication: ACNE
     Dosage: UNK
     Dates: start: 20080101

REACTIONS (3)
  - NAUSEA [None]
  - VOMITING [None]
  - VISION BLURRED [None]
